FAERS Safety Report 9170422 (Version 1)
Quarter: 2013Q1

REPORT INFORMATION
  Report Type: Spontaneous
  Country: US (occurrence: None)
  Receive Date: 20130307
  Receipt Date: 20130307
  Transmission Date: 20140127
  Serious: Yes (Other)
  Sender: FDA-Public Use
  Company Number: 2013SA019321

PATIENT
  Sex: Female

DRUGS (1)
  1. MENTHOL [Suspect]
     Dates: start: 20120724

REACTIONS (1)
  - Chemical injury [None]
